FAERS Safety Report 4285905-7 (Version None)
Quarter: 2004Q1

REPORT INFORMATION
  Report Type: 
  Country: None (occurrence: None)
  Receive Date: 20040203
  Receipt Date: 20040121
  Transmission Date: 20041129
  Serious: Yes (Other)
  Sender: FDA-Public Use
  Company Number: 2004-BP-00465BP

PATIENT
  Age: 72 Year
  Sex: Male

DRUGS (3)
  1. MITRAPEX TABLETS (PRAMIPEXOLE DIHYDROCHLORIDE) [Suspect]
     Indication: PARKINSON'S DISEASE
     Dosage: 2.5 MG (0.5 MG, TID (2 TABLETS-2 TABLETS-1 TABLET)); PO (SEE IMAGE)
     Route: 048
  2. ENALAPRIL [Concomitant]
  3. PROSCAR [Concomitant]

REACTIONS (2)
  - JOINT SWELLING [None]
  - PROSTATE CANCER [None]
